FAERS Safety Report 14374069 (Version 2)
Quarter: 2018Q1

REPORT INFORMATION
  Report Type: Spontaneous
  Country: US (occurrence: US)
  Receive Date: 20180111
  Receipt Date: 20180201
  Transmission Date: 20180509
  Serious: No
  Sender: FDA-Public Use
  Company Number: US-ASTRAZENECA-2017SF30540

PATIENT
  Age: 66 Year
  Sex: Male
  Weight: 91.2 kg

DRUGS (1)
  1. SYMBICORT [Suspect]
     Active Substance: BUDESONIDE\FORMOTEROL FUMARATE DIHYDRATE
     Indication: CHRONIC OBSTRUCTIVE PULMONARY DISEASE
     Dosage: 160/4.5 MCG TWO PUFFS ONCE A DAY
     Route: 055
     Dates: start: 2015

REACTIONS (6)
  - Dyspnoea [Not Recovered/Not Resolved]
  - Senile dementia [Unknown]
  - Drug dose omission [Not Recovered/Not Resolved]
  - Wrong technique in device usage process [Unknown]
  - Off label use [Unknown]
  - Product quality issue [Unknown]

NARRATIVE: CASE EVENT DATE: 2015
